APPROVED DRUG PRODUCT: AMINOSYN II 10% IN PLASTIC CONTAINER
Active Ingredient: AMINO ACIDS
Strength: 10% (10GM/100ML)
Dosage Form/Route: INJECTABLE;INJECTION
Application: N020015 | Product #001
Applicant: OTSUKA ICU MEDICAL LLC
Approved: Dec 19, 1991 | RLD: No | RS: No | Type: RX